FAERS Safety Report 6405716-3 (Version None)
Quarter: 2009Q4

REPORT INFORMATION
  Report Type: 
  Country: None (occurrence: None)
  Receive Date: 20091016
  Receipt Date: 20091016
  Transmission Date: 20100525
  Serious: Yes (Other)
  Sender: FDA-Public Use
  Company Number: None

PATIENT
  Age: 72 Year
  Sex: Female
  Weight: 79.3795 kg

DRUGS (2)
  1. CIPROFLOXACIN 500MG. TAB [Suspect]
     Indication: DIVERTICULUM
     Dosage: 2 X DAILY 10DAYS 500 MG. TAB TOOK ONLY 7 DAYS TOOK 14 PILLS OUT OF 20
  2. CIPROFLOXACIN 500MG. TAB [Suspect]
     Indication: INFECTION
     Dosage: 2 X DAILY 10DAYS 500 MG. TAB TOOK ONLY 7 DAYS TOOK 14 PILLS OUT OF 20

REACTIONS (3)
  - MOVEMENT DISORDER [None]
  - MUSCULOSKELETAL PAIN [None]
  - PAIN IN EXTREMITY [None]
